FAERS Safety Report 8377321-3 (Version None)
Quarter: 2012Q2

REPORT INFORMATION
  Report Type: 
  Country: None (occurrence: None)
  Receive Date: 20120522
  Receipt Date: 20120514
  Transmission Date: 20120825
  Serious: No
  Sender: FDA-Public Use
  Company Number: US-ASTRAZENECA-2012SE28025

PATIENT
  Age: 75 Year
  Sex: Female
  Weight: 48.5 kg

DRUGS (5)
  1. LISINOPRIL [Suspect]
     Indication: BLOOD PRESSURE ABNORMAL
     Route: 048
  2. SYMBICORT [Suspect]
     Indication: ASTHMA
     Dosage: 80/4.5 MCG, TWO PUFFS, UNKNOWN
     Route: 055
     Dates: start: 20100101
  3. METOPROLOL [Suspect]
     Indication: BLOOD PRESSURE ABNORMAL
     Route: 048
  4. SYMBICORT [Suspect]
     Dosage: 80/4.5 MCG, ONE PUFF, AT NIGHT
     Route: 055
  5. GABAPENTIN [Concomitant]
     Indication: PAIN
     Route: 048

REACTIONS (2)
  - DYSPNOEA [None]
  - INTENTIONAL DRUG MISUSE [None]
